FAERS Safety Report 9216247 (Version 4)
Quarter: 2013Q4

REPORT INFORMATION
  Report Type: Spontaneous
  Country: JP (occurrence: JP)
  Receive Date: 20130408
  Receipt Date: 20131111
  Transmission Date: 20140711
  Serious: Yes (Death, Other)
  Sender: FDA-Public Use
  Company Number: JP-MPIJNJ-2013-00944

PATIENT
  Sex: 0

DRUGS (27)
  1. VELCADE [Suspect]
     Indication: PLASMA CELL MYELOMA
     Dosage: 1.3 MG/M2, UNK
     Route: 058
     Dates: start: 20120910, end: 20120910
  2. VELCADE [Suspect]
     Indication: AMYLOIDOSIS
  3. VELCADE [Suspect]
     Indication: CARDIAC AMYLOIDOSIS
  4. DEXAMETHASONE [Suspect]
     Indication: PLASMA CELL MYELOMA
     Dosage: 20 MG, UNK
     Route: 048
     Dates: start: 20120907, end: 20120910
  5. DEXAMETHASONE [Suspect]
     Indication: AMYLOIDOSIS
  6. DEXAMETHASONE [Suspect]
     Indication: CARDIAC AMYLOIDOSIS
  7. PARIET [Concomitant]
     Indication: PLASMA CELL MYELOMA
     Dosage: 10 MG, UNK
     Route: 048
     Dates: start: 20120905
  8. PARIET [Concomitant]
     Indication: AMYLOIDOSIS
  9. PARIET [Concomitant]
     Indication: CARDIAC AMYLOIDOSIS
  10. ZYLORIC                            /00003301/ [Concomitant]
     Indication: PLASMA CELL MYELOMA
     Dosage: 100 MG, UNK
     Route: 048
     Dates: start: 20120905
  11. ZYLORIC                            /00003301/ [Concomitant]
     Indication: AMYLOIDOSIS
  12. ZYLORIC                            /00003301/ [Concomitant]
     Indication: CARDIAC AMYLOIDOSIS
  13. LASIX                              /00032601/ [Concomitant]
     Indication: PLASMA CELL MYELOMA
     Dosage: 20 MG, UNK
     Route: 048
     Dates: start: 20120910
  14. LASIX                              /00032601/ [Concomitant]
     Indication: AMYLOIDOSIS
  15. LASIX                              /00032601/ [Concomitant]
     Indication: CARDIAC AMYLOIDOSIS
  16. LONGES [Concomitant]
     Indication: PLASMA CELL MYELOMA
     Dosage: 5 MG, UNK
     Route: 048
     Dates: start: 20120910
  17. LONGES [Concomitant]
     Indication: AMYLOIDOSIS
  18. LONGES [Concomitant]
     Indication: CARDIAC AMYLOIDOSIS
  19. FLUCONAZOLE [Concomitant]
     Indication: PLASMA CELL MYELOMA
     Dosage: 200 MG, UNK
     Route: 048
     Dates: start: 20120910
  20. FLUCONAZOLE [Concomitant]
     Indication: AMYLOIDOSIS
  21. FLUCONAZOLE [Concomitant]
     Indication: CARDIAC AMYLOIDOSIS
  22. LENDORMIN [Concomitant]
     Indication: PLASMA CELL MYELOMA
     Dosage: 0.25 MG, UNK
     Route: 048
     Dates: start: 20120905
  23. LENDORMIN [Concomitant]
     Indication: AMYLOIDOSIS
  24. LENDORMIN [Concomitant]
     Indication: CARDIAC AMYLOIDOSIS
  25. SAWACILLIN [Concomitant]
     Indication: PLASMA CELL MYELOMA
     Dosage: 1000 MG, UNK
     Route: 048
     Dates: start: 20120913, end: 20120914
  26. SAWACILLIN [Concomitant]
     Indication: AMYLOIDOSIS
  27. SAWACILLIN [Concomitant]
     Indication: CARDIAC AMYLOIDOSIS

REACTIONS (2)
  - Cardiac amyloidosis [Fatal]
  - Ventricular tachycardia [Fatal]
